FAERS Safety Report 7128283-8 (Version None)
Quarter: 2010Q4

REPORT INFORMATION
  Report Type: 
  Country: None (occurrence: None)
  Receive Date: 20101130
  Receipt Date: 20101116
  Transmission Date: 20110411
  Serious: Yes (Hospitalization)
  Sender: FDA-Public Use
  Company Number: PHHY2010CA78566

PATIENT

DRUGS (1)
  1. ALISKIREN ALI+ [Suspect]
     Dosage: UNK
     Dates: end: 20101024

REACTIONS (5)
  - ANAEMIA [None]
  - BRADYCARDIA [None]
  - CARDIAC FAILURE [None]
  - CARDIAC PACEMAKER INSERTION [None]
  - HAEMATOMA [None]
